FAERS Safety Report 4474863-8 (Version None)
Quarter: 2004Q4

REPORT INFORMATION
  Report Type: 
  Country: None (occurrence: None)
  Receive Date: 20041012
  Receipt Date: 20040927
  Transmission Date: 20050328
  Serious: Yes (Other)
  Sender: FDA-Public Use
  Company Number: 2004071685

PATIENT
  Age: 28 Year
  Sex: Male
  Weight: 60.3 kg

DRUGS (3)
  1. DOXYCYCLINE [Suspect]
     Indication: MALARIA
     Dosage: 100 MG (100 MG, 1 IN 1 D), ORAL
     Route: 048
     Dates: start: 20040719, end: 20040826
  2. DOXYCYCLINE [Suspect]
     Indication: MALARIA PROPHYLAXIS
     Dosage: 100 MG (100 MG, 1 IN 1 D), ORAL
     Route: 048
     Dates: start: 20040719, end: 20040826
  3. CETIRIZINE HCL [Concomitant]

REACTIONS (2)
  - ARTHRALGIA [None]
  - DERMATITIS EXFOLIATIVE [None]
